FAERS Safety Report 23029359 (Version 1)
Quarter: 2023Q4

REPORT INFORMATION
  Report Type: Spontaneous
  Country: CN (occurrence: CN)
  Receive Date: 20231004
  Receipt Date: 20231004
  Transmission Date: 20240109
  Serious: Yes (Hospitalization, Other)
  Sender: FDA-Public Use
  Company Number: CN-PFIZER INC-PV202300163756

PATIENT
  Age: 75 Year
  Sex: Male
  Weight: 43 kg

DRUGS (1)
  1. ESTRAMUSTINE [Suspect]
     Active Substance: ESTRAMUSTINE
     Indication: Prostate cancer metastatic
     Dosage: 6 DF, 3X/DAY
     Route: 048
     Dates: start: 20230412, end: 20230923

REACTIONS (5)
  - Myelosuppression [Recovering/Resolving]
  - Cough [Unknown]
  - Productive cough [Unknown]
  - Ecchymosis [Unknown]
  - Dyspnoea exertional [Unknown]

NARRATIVE: CASE EVENT DATE: 20230923
